FAERS Safety Report 13016559 (Version 2)
Quarter: 2017Q1

REPORT INFORMATION
  Report Type: Spontaneous
  Country: US (occurrence: US)
  Receive Date: 20161212
  Receipt Date: 20170303
  Transmission Date: 20170428
  Serious: Yes (Hospitalization)
  Sender: FDA-Public Use
  Company Number: US-JNJFOC-20161112173

PATIENT
  Age: 64 Year
  Sex: Male

DRUGS (6)
  1. XARELTO [Suspect]
     Active Substance: RIVAROXABAN
     Indication: DEEP VEIN THROMBOSIS
     Dosage: 15 MG TWICE DAILY AND 20 MG ONCE DAILY
     Route: 048
     Dates: start: 20150318, end: 20150427
  2. LOVENOX [Suspect]
     Active Substance: ENOXAPARIN SODIUM
     Indication: PULMONARY EMBOLISM
     Route: 065
  3. ASPIRIN. [Suspect]
     Active Substance: ASPIRIN
     Indication: CORONARY ARTERY DISEASE
     Route: 065
  4. WARFARIN [Suspect]
     Active Substance: WARFARIN
     Indication: PRODUCT USED FOR UNKNOWN INDICATION
     Route: 065
     Dates: end: 20150608
  5. XARELTO [Suspect]
     Active Substance: RIVAROXABAN
     Indication: PULMONARY EMBOLISM
     Dosage: 15 MG TWICE DAILY AND 20 MG ONCE DAILY
     Route: 048
     Dates: start: 20150318, end: 20150427
  6. LOVENOX [Suspect]
     Active Substance: ENOXAPARIN SODIUM
     Indication: HAEMATOMA
     Route: 065

REACTIONS (1)
  - Haemorrhagic arteriovenous malformation [Unknown]

NARRATIVE: CASE EVENT DATE: 20150427
